FAERS Safety Report 22988299 (Version 4)
Quarter: 2023Q4

REPORT INFORMATION
  Report Type: Report from Study
  Country: US (occurrence: US)
  Receive Date: 20230926
  Receipt Date: 20231215
  Transmission Date: 20240109
  Serious: Yes (Hospitalization, Other)
  Sender: FDA-Public Use
  Company Number: US-BAYER-2023A128227

PATIENT
  Age: 64 Year
  Sex: Male

DRUGS (4)
  1. STIVARGA [Suspect]
     Active Substance: REGORAFENIB
     Indication: Rectal cancer
     Dosage: 80 MG, QD, FOR 1 WEEK
     Dates: start: 20230919, end: 20230925
  2. STIVARGA [Suspect]
     Active Substance: REGORAFENIB
     Indication: Rectal cancer
     Dosage: 120 MG, QD FOR 2 WEEK
     Route: 048
     Dates: start: 20230926, end: 20230928
  3. STIVARGA [Suspect]
     Active Substance: REGORAFENIB
     Indication: Rectal cancer
     Dosage: 80 MG, QD, ON 21 DAYS, THEN OFF 7 DAYS
     Route: 048
     Dates: start: 20230928
  4. STIVARGA [Suspect]
     Active Substance: REGORAFENIB
     Indication: Rectal cancer
     Dosage: 160 MG, QD
     Route: 048

REACTIONS (12)
  - Neuropathy peripheral [Unknown]
  - Neuropathy peripheral [None]
  - Diarrhoea [None]
  - Decreased activity [Unknown]
  - Hypotension [Unknown]
  - Off label use [None]
  - Weight decreased [Unknown]
  - Fatigue [None]
  - General physical health deterioration [Not Recovered/Not Resolved]
  - Diarrhoea [Not Recovered/Not Resolved]
  - Constipation [Not Recovered/Not Resolved]
  - Gait disturbance [Not Recovered/Not Resolved]
